FAERS Safety Report 15831250 (Version 1)
Quarter: 2019Q1

REPORT INFORMATION
  Report Type: Spontaneous
  Country: US (occurrence: US)
  Receive Date: 20190114
  Receipt Date: 20190114
  Transmission Date: 20190417
  Serious: No
  Sender: FDA-Public Use
  Company Number: None

PATIENT
  Age: 72 Year
  Sex: Male

DRUGS (7)
  1. VITAMIN D3 [Concomitant]
     Active Substance: CHOLECALCIFEROL
  2. LUPRON [Concomitant]
     Active Substance: LEUPROLIDE ACETATE
  3. PREDNISONE. [Concomitant]
     Active Substance: PREDNISONE
  4. LIPITOR [Concomitant]
     Active Substance: ATORVASTATIN CALCIUM
  5. ASPIRIN. [Concomitant]
     Active Substance: ASPIRIN
  6. ZYTIGA [Suspect]
     Active Substance: ABIRATERONE ACETATE
     Indication: PROSTATE CANCER
     Route: 048
     Dates: start: 20190104
  7. TRICOR [Concomitant]
     Active Substance: FENOFIBRATE

REACTIONS (1)
  - Tinnitus [None]
